FAERS Safety Report 8997877 (Version 1)
Quarter: 2013Q1

REPORT INFORMATION
  Report Type: Report from Study
  Country: US (occurrence: US)
  Receive Date: 20130104
  Receipt Date: 20130104
  Transmission Date: 20140127
  Serious: Yes (Other)
  Sender: FDA-Public Use
  Company Number: US-ROCHE-1170578

PATIENT
  Sex: Female

DRUGS (1)
  1. RANIBIZUMAB [Suspect]
     Indication: AGE-RELATED MACULAR DEGENERATION
     Route: 042
     Dates: start: 20121001

REACTIONS (4)
  - Blindness [Unknown]
  - Amnesia [Unknown]
  - Eye pain [Unknown]
  - Pain [Unknown]
